FAERS Safety Report 8182220-6 (Version None)
Quarter: 2012Q1

REPORT INFORMATION
  Report Type: 
  Country: None (occurrence: None)
  Receive Date: 20120302
  Receipt Date: 20120228
  Transmission Date: 20120608
  Serious: Yes (Life-Threatening, Hospitalization, Other)
  Sender: FDA-Public Use
  Company Number: PHHY2012FR017321

PATIENT
  Sex: Female

DRUGS (6)
  1. VALSARTAN  AND HYDROCHLOROTHIAZIDE [Suspect]
     Dosage: 1 DF, QD
     Route: 048
     Dates: end: 20111110
  2. METFORMIN HCL [Suspect]
     Dosage: 850 MG, UNK
     Dates: end: 20111110
  3. FLUVASTATIN SODIUM [Suspect]
     Dosage: 40 MG, UNK
     Route: 048
     Dates: end: 20111110
  4. LOPRESSOR [Concomitant]
  5. PIASCLEDINE [Suspect]
     Dosage: UNK
     Dates: end: 20111110
  6. LYRICA [Concomitant]

REACTIONS (5)
  - RHABDOMYOLYSIS [None]
  - HYPERKALAEMIA [None]
  - RENAL FAILURE ACUTE [None]
  - FALL [None]
  - DEHYDRATION [None]
